FAERS Safety Report 11929283 (Version 1)
Quarter: 2016Q1

REPORT INFORMATION
  Report Type: Spontaneous
  Country: US (occurrence: US)
  Receive Date: 20160120
  Receipt Date: 20160120
  Transmission Date: 20160526
  Serious: No
  Sender: FDA-Public Use
  Company Number: US-B.I. PHARMACEUTICALS,INC./RIDGEFIELD-2016-BI-01246BP

PATIENT
  Age: 67 Year
  Sex: Female
  Weight: 59 kg

DRUGS (3)
  1. PEPCID [Concomitant]
     Active Substance: FAMOTIDINE
     Indication: GASTROOESOPHAGEAL REFLUX DISEASE
     Route: 048
  2. PULMICORT FLEXHALER [Concomitant]
     Active Substance: BUDESONIDE
     Indication: ASTHMA
     Route: 055
  3. STIOLTO RESPIMAT [Suspect]
     Active Substance: OLODATEROL HYDROCHLORIDE\TIOTROPIUM BROMIDE MONOHYDRATE
     Indication: ASTHMA
     Dosage: 5 MCG
     Route: 055
     Dates: start: 201512

REACTIONS (3)
  - Costochondritis [Not Recovered/Not Resolved]
  - Off label use [Unknown]
  - Obstruction [Unknown]

NARRATIVE: CASE EVENT DATE: 201512
